FAERS Safety Report 16766020 (Version 1)
Quarter: 2019Q3

REPORT INFORMATION
  Report Type: Other
  Country: CA (occurrence: CA)
  Receive Date: 20190903
  Receipt Date: 20190903
  Transmission Date: 20191005
  Serious: Yes (Other)
  Sender: FDA-Public Use
  Company Number: CA-PFIZER INC-2019369327

PATIENT
  Age: 79 Year
  Sex: Male

DRUGS (8)
  1. HYDROCORTISONE. [Suspect]
     Active Substance: HYDROCORTISONE
     Indication: PROSTATE CANCER
     Dosage: 30 MG, 1X/DAY
     Route: 048
  2. BICALUTAMIDE. [Concomitant]
     Active Substance: BICALUTAMIDE
     Dosage: UNK
  3. PREDNISONE. [Suspect]
     Active Substance: PREDNISONE
     Indication: PROSTATE CANCER
     Dosage: 5 MG, 2X/DAY
     Route: 048
  4. ZOLEDRONIC ACID [Suspect]
     Active Substance: ZOLEDRONIC ACID
     Indication: PROSTATE CANCER
     Dosage: UNK
  5. DEXAMETHASONE. [Suspect]
     Active Substance: DEXAMETHASONE
     Indication: PROSTATE CANCER
     Dosage: 8 MG, UNK
     Route: 048
  6. DOCETAXEL. [Suspect]
     Active Substance: DOCETAXEL
     Indication: PROSTATE CANCER
     Dosage: UNK, EVERY 3 WEEKS
  7. KETOCONAZOLE. [Concomitant]
     Active Substance: KETOCONAZOLE
     Dosage: UNK
  8. LEUPROLIDE [LEUPRORELIN] [Concomitant]
     Dosage: UNK

REACTIONS (3)
  - Cushingoid [Unknown]
  - Osteonecrosis [Unknown]
  - Fatigue [Unknown]
